FAERS Safety Report 17964139 (Version 1)
Quarter: 2020Q2

REPORT INFORMATION
  Report Type: Spontaneous
  Country: ES (occurrence: ES)
  Receive Date: 20200630
  Receipt Date: 20200630
  Transmission Date: 20200714
  Serious: Yes (Hospitalization)
  Sender: FDA-Public Use
  Company Number: ES-PFIZER INC-2020249432

PATIENT
  Age: 75 Year
  Sex: Male

DRUGS (10)
  1. MANIDIPINE HYDROCHLORIDE [Concomitant]
     Active Substance: MANIDIPINE HYDROCHLORIDE
     Indication: HYPERTENSION
     Dosage: 20 MG, 1X/DAY
     Route: 048
     Dates: start: 2017
  2. ALOPURINOL NORMON [Concomitant]
     Active Substance: ALLOPURINOL
     Indication: HYPERURICAEMIA
     Dosage: 150 MG, 1X/DAY
     Route: 048
     Dates: start: 2017
  3. FUROSEMIDA [FUROSEMIDE] [Concomitant]
     Active Substance: FUROSEMIDE
     Indication: CHRONIC KIDNEY DISEASE
     Dosage: 40 MG, 1X/DAY
     Route: 048
     Dates: start: 2017
  4. SIMVASTATINA [Concomitant]
     Active Substance: SIMVASTATIN
     Indication: HYPERLIPIDAEMIA
     Dosage: 20 MG, 1X/DAY
     Route: 048
     Dates: start: 2017
  5. DOXAZOSINA [DOXAZOSIN] [Concomitant]
     Indication: HYPERTENSION
     Dosage: 4 MG, 1X/DAY
     Route: 048
     Dates: start: 2017
  6. TIAPRIZAL [Suspect]
     Active Substance: TIAPRIDE HYDROCHLORIDE
     Indication: DEPRESSION
     Dosage: 200 MG, 1X/DAY
     Route: 048
     Dates: start: 20200405, end: 20200421
  7. ALPRAZOLAM NORMON [Suspect]
     Active Substance: ALPRAZOLAM
     Indication: DEPRESSION
     Dosage: 0.25 MG, 2X/DAY (0.25 MG/12 HOURS)
     Route: 048
     Dates: start: 20200324, end: 20200421
  8. OMEPRAZOL [Concomitant]
     Active Substance: OMEPRAZOLE
     Indication: GASTRITIS PROPHYLAXIS
     Dosage: 20 MG, 1X/DAY
     Route: 048
     Dates: start: 2017
  9. VENLAFAXINE HCL [Suspect]
     Active Substance: VENLAFAXINE HYDROCHLORIDE
     Indication: DEPRESSION
     Dosage: 150 MG, 1X/DAY
     Route: 048
     Dates: start: 201902
  10. OXCARBAZEPINA [Concomitant]
     Active Substance: OXCARBAZEPINE
     Indication: PETIT MAL EPILEPSY
     Dosage: 150 MG, 2X/DAY (150 MG/12 HOURS)
     Route: 048
     Dates: start: 201702

REACTIONS (2)
  - Parkinsonism [Unknown]
  - Cognitive disorder [Unknown]

NARRATIVE: CASE EVENT DATE: 20200412
